FAERS Safety Report 5879360-0 (Version None)
Quarter: 2008Q3

REPORT INFORMATION
  Report Type: 
  Country: None (occurrence: None)
  Receive Date: 20080912
  Receipt Date: 20080904
  Transmission Date: 20090109
  Serious: Yes (Hospitalization)
  Sender: FDA-Public Use
  Company Number: A0747126A

PATIENT
  Age: 56 Year
  Sex: Male
  Weight: 136.4 kg

DRUGS (4)
  1. AVANDIA [Suspect]
     Dosage: 12MG PER DAY
     Route: 048
     Dates: start: 20010101, end: 20040101
  2. ASPIRIN [Concomitant]
  3. LIPITOR [Concomitant]
  4. AVAPRO [Concomitant]

REACTIONS (2)
  - MYOCARDIAL INFARCTION [None]
  - RENAL FAILURE [None]
